FAERS Safety Report 14586097 (Version 1)
Quarter: 2018Q1

REPORT INFORMATION
  Report Type: Spontaneous
  Country: AU (occurrence: AU)
  Receive Date: 20180301
  Receipt Date: 20180301
  Transmission Date: 20180509
  Serious: Yes (Hospitalization, Other)
  Sender: FDA-Public Use
  Company Number: PHHY2018AU031965

PATIENT
  Age: 58 Year
  Sex: Female

DRUGS (19)
  1. HYDROXYUREA. [Concomitant]
     Active Substance: HYDROXYUREA
     Dosage: 1 G, QD
     Route: 065
  2. BACTRIM DS [Concomitant]
     Active Substance: SULFAMETHOXAZOLE\TRIMETHOPRIM
     Indication: PRODUCT USED FOR UNKNOWN INDICATION
     Dosage: 1 BD MONDAY AND THURSDAY
     Route: 065
  3. VALACICLOVIR [Concomitant]
     Active Substance: VALACYCLOVIR HYDROCHLORIDE
     Indication: PRODUCT USED FOR UNKNOWN INDICATION
     Dosage: 500 MG, QD
     Route: 065
  4. TARGIN [Concomitant]
     Active Substance: NALOXONE HYDROCHLORIDE\OXYCODONE HYDROCHLORIDE
     Indication: PRODUCT USED FOR UNKNOWN INDICATION
     Dosage: 1 DF, BID
     Route: 065
  5. PREDNISOLONE. [Concomitant]
     Active Substance: PREDNISOLONE
     Indication: PRODUCT USED FOR UNKNOWN INDICATION
     Dosage: UNK
     Route: 065
  6. PREDNISOLONE. [Concomitant]
     Active Substance: PREDNISOLONE
     Dosage: 37.5 MG, QD
     Route: 065
  7. INTERFERON ALFA-2B [Concomitant]
     Active Substance: INTERFERON ALFA-2B
     Indication: PRODUCT USED FOR UNKNOWN INDICATION
     Dosage: 1 MILLION UNITS MON/WED/FRI
     Route: 065
     Dates: start: 20160927, end: 201708
  8. ZOLEDRONIC ACID [Suspect]
     Active Substance: ZOLEDRONIC ACID
     Indication: PRODUCT USED FOR UNKNOWN INDICATION
     Dosage: UNK
     Route: 065
  9. METOCLOPRAMIDE. [Concomitant]
     Active Substance: METOCLOPRAMIDE
     Indication: PRODUCT USED FOR UNKNOWN INDICATION
     Dosage: 10 MG, TID (PRN)
     Route: 065
  10. CLADRIBINE. [Suspect]
     Active Substance: CLADRIBINE
     Dosage: SECOND CYCLE
     Route: 065
     Dates: start: 201607
  11. ENDONE [Concomitant]
     Active Substance: OXYCODONE HYDROCHLORIDE
     Indication: GROIN PAIN
     Dosage: UNK UNK, PRN
     Route: 065
  12. LORATADINE. [Concomitant]
     Active Substance: LORATADINE
     Indication: PRODUCT USED FOR UNKNOWN INDICATION
     Route: 065
  13. CLADRIBINE. [Suspect]
     Active Substance: CLADRIBINE
     Indication: MASTOCYTOSIS
     Dosage: 1 CYCLE
     Route: 065
     Dates: start: 201605
  14. PANTOPRAZOLE [Concomitant]
     Active Substance: PANTOPRAZOLE
     Indication: PRODUCT USED FOR UNKNOWN INDICATION
     Dosage: 40 MG, QD
     Route: 065
  15. FUROSEMIDE. [Concomitant]
     Active Substance: FUROSEMIDE
     Indication: PRODUCT USED FOR UNKNOWN INDICATION
     Dosage: 40 MG, QD
     Route: 065
     Dates: start: 20160203
  16. ZOLEDRONIC ACID [Suspect]
     Active Substance: ZOLEDRONIC ACID
     Dosage: UNK
     Route: 065
     Dates: start: 201702
  17. RANITIDINE. [Concomitant]
     Active Substance: RANITIDINE
     Indication: PRODUCT USED FOR UNKNOWN INDICATION
     Dosage: 300 MG, QD
     Route: 065
  18. PREDNISOLONE. [Concomitant]
     Active Substance: PREDNISOLONE
     Dosage: 5 MG, QID (FOR ONE MORE WEEK)
     Route: 065
  19. HYDROXYUREA. [Concomitant]
     Active Substance: HYDROXYUREA
     Indication: MASTOCYTOSIS
     Dosage: 500 MG, QD
     Route: 065

REACTIONS (34)
  - Eosinophil count increased [Unknown]
  - Renal cyst [Unknown]
  - Sinus tachycardia [Unknown]
  - Blood potassium decreased [Unknown]
  - Nausea [Recovered/Resolved]
  - Gastrointestinal disorder [Unknown]
  - Cytopenia [Unknown]
  - Blood lactate dehydrogenase decreased [Unknown]
  - Drug intolerance [Unknown]
  - Systemic mastocytosis [Unknown]
  - Limb discomfort [Unknown]
  - Cushingoid [Unknown]
  - Oedema peripheral [Unknown]
  - Dyspnoea [Unknown]
  - Vomiting [Recovered/Resolved]
  - Osteolysis [Unknown]
  - Abdominal distension [Not Recovered/Not Resolved]
  - Pathological fracture [Unknown]
  - Abdominal pain upper [Unknown]
  - Arthralgia [Unknown]
  - Anaphylactic reaction [Not Recovered/Not Resolved]
  - Eosinophilia [Unknown]
  - C-kit gene mutation [Unknown]
  - Bone lesion [Unknown]
  - Groin pain [Not Recovered/Not Resolved]
  - Blood magnesium decreased [Unknown]
  - Blood chloride increased [Unknown]
  - Toxicity to various agents [Unknown]
  - Duodenal ulcer [Unknown]
  - Tryptase increased [Unknown]
  - Gamma-glutamyltransferase increased [Unknown]
  - Depression [Unknown]
  - Hypersensitivity [Unknown]
  - Influenza like illness [Unknown]

NARRATIVE: CASE EVENT DATE: 201512
